FAERS Safety Report 17665722 (Version 1)
Quarter: 2020Q2

REPORT INFORMATION
  Report Type: Spontaneous
  Country: US (occurrence: US)
  Receive Date: 20200414
  Receipt Date: 20200414
  Transmission Date: 20200713
  Serious: Yes (Hospitalization)
  Sender: FDA-Public Use
  Company Number: None

PATIENT
  Sex: Male

DRUGS (1)
  1. BEXAROTENE. [Suspect]
     Active Substance: BEXAROTENE
     Route: 048

REACTIONS (3)
  - Clostridium difficile infection [None]
  - Therapy cessation [None]
  - Radiation pneumonitis [None]
